FAERS Safety Report 10022726 (Version 3)
Quarter: 2014Q2

REPORT INFORMATION
  Report Type: Spontaneous
  Country: FR (occurrence: FR)
  Receive Date: 20140319
  Receipt Date: 20140414
  Transmission Date: 20141212
  Serious: Yes (Other)
  Sender: FDA-Public Use
  Company Number: FR-PFIZER INC-2014074199

PATIENT
  Age: 87 Year
  Sex: Female
  Weight: 47 kg

DRUGS (1)
  1. LYRICA [Suspect]
     Indication: NEURALGIA
     Dosage: 125 MG DAILY (50 MG IN THE MORNING, 25 MG AT LUNCH TIME AND 50 MG IN THE EVENING)
     Route: 048
     Dates: start: 20140109, end: 20140110

REACTIONS (4)
  - Incorrect dose administered [Unknown]
  - Hypotension [Recovered/Resolved]
  - Atrioventricular block first degree [Recovered/Resolved]
  - Renal failure [Unknown]
